FAERS Safety Report 10017699 (Version 1)
Quarter: 2014Q1

REPORT INFORMATION
  Report Type: Spontaneous
  Country: US (occurrence: US)
  Receive Date: 20140318
  Receipt Date: 20140318
  Transmission Date: 20141002
  Serious: Yes (Hospitalization)
  Sender: FDA-Public Use
  Company Number: US-BRISTOL-MYERS SQUIBB COMPANY-17431669

PATIENT
  Sex: Male
  Weight: 95.24 kg

DRUGS (1)
  1. ERBITUX [Suspect]
     Indication: COLORECTAL CANCER METASTATIC
     Dates: start: 20120221

REACTIONS (5)
  - Chest discomfort [Unknown]
  - Abdominal pain [Unknown]
  - Anxiety [Unknown]
  - Flushing [Unknown]
  - Skin lesion [Unknown]
